FAERS Safety Report 8177182-1 (Version None)
Quarter: 2012Q1

REPORT INFORMATION
  Report Type: 
  Country: None (occurrence: None)
  Receive Date: 20120124
  Receipt Date: 20111214
  Transmission Date: 20120608
  Serious: No
  Sender: FDA-Public Use
  Company Number: US-007140

PATIENT
  Age: 68 Year
  Sex: Male
  Weight: 113.3993 kg

DRUGS (2)
  1. NAPROXEN [Concomitant]
  2. DEGARELIX 240 MG [Suspect]
     Indication: PROSTATE CANCER
     Dosage: (240 MG 1X SUBCUTANEOUS)
     Route: 058
     Dates: start: 20111202, end: 20111202

REACTIONS (1)
  - URTICARIA [None]
